FAERS Safety Report 10627345 (Version 2)
Quarter: 2015Q1

REPORT INFORMATION
  Report Type: Spontaneous
  Country: IT (occurrence: IT)
  Receive Date: 20141204
  Receipt Date: 20150120
  Transmission Date: 20150720
  Serious: Yes (Other)
  Sender: FDA-Public Use
  Company Number: IT-TEVA-524760ISR

PATIENT
  Age: 65 Year
  Sex: Female
  Weight: 90 kg

DRUGS (12)
  1. OXALIPLATIN. [Suspect]
     Active Substance: OXALIPLATIN
     Indication: NON-HODGKIN^S LYMPHOMA
     Dosage: 150 MG CYCLICAL
     Route: 042
     Dates: start: 20140728, end: 20141119
  2. FLEBOCORTID RICHTER [Concomitant]
     Indication: PREMEDICATION
     Dosage: 100 MG
     Route: 042
     Dates: start: 20140904, end: 20140904
  3. TRIMETON - 10 MG/1 ML SOLUZIONE INIETTABILE [Concomitant]
     Indication: PREMEDICATION
     Dosage: 10 MG
     Route: 042
     Dates: start: 20140904, end: 20140904
  4. RANITIDINE [Concomitant]
     Active Substance: RANITIDINE\RANITIDINE HYDROCHLORIDE
     Indication: PREMEDICATION
     Dosage: 50 MG
     Dates: start: 20140904, end: 20140904
  5. MABTHERA [Suspect]
     Active Substance: RITUXIMAB
     Route: 042
  6. PEGFILGRASTIM [Concomitant]
     Active Substance: PEGFILGRASTIM
     Indication: PRODUCT USED FOR UNKNOWN INDICATION
  7. FOSICOMBI - 20 MG + 12,5 MG COMPRESSE [Concomitant]
     Indication: PRODUCT USED FOR UNKNOWN INDICATION
     Route: 048
     Dates: start: 20000101, end: 20141119
  8. OMEPRAZEN [Concomitant]
     Active Substance: OMEPRAZOLE
     Indication: PRODUCT USED FOR UNKNOWN INDICATION
     Route: 048
     Dates: start: 20131118, end: 20141119
  9. GEMCITABINE [Suspect]
     Active Substance: GEMCITABINE\GEMCITABINE HYDROCHLORIDE
     Indication: NON-HODGKIN^S LYMPHOMA
     Dates: start: 20140728, end: 20141119
  10. MABTHERA [Suspect]
     Active Substance: RITUXIMAB
     Indication: NON-HODGKIN^S LYMPHOMA
     Dosage: 750 MG CYCLICAL
     Route: 042
     Dates: start: 20131125, end: 20141119
  11. PARACETAMOLO KABI [Concomitant]
     Indication: PREMEDICATION
     Dosage: 100 MG
     Route: 042
     Dates: start: 20140904, end: 20140904
  12. GLUCOPHAGE [Concomitant]
     Active Substance: METFORMIN HYDROCHLORIDE
     Indication: PRODUCT USED FOR UNKNOWN INDICATION
     Dosage: 850 MG
     Route: 048
     Dates: start: 20000101, end: 20141119

REACTIONS (2)
  - Abdominal pain upper [Recovering/Resolving]
  - Vomiting [Recovering/Resolving]

NARRATIVE: CASE EVENT DATE: 20140908
